FAERS Safety Report 4761704-4 (Version None)
Quarter: 2005Q3

REPORT INFORMATION
  Report Type: 
  Country: None (occurrence: None)
  Receive Date: 20050906
  Receipt Date: 20050826
  Transmission Date: 20060218
  Serious: Yes (Hospitalization)
  Sender: FDA-Public Use
  Company Number: US-JNJFOC-20050806897

PATIENT
  Sex: Female

DRUGS (10)
  1. TOPAMAX [Suspect]
     Indication: MIGRAINE PROPHYLAXIS
     Route: 048
  2. LIPITOR [Concomitant]
  3. ZOLOFT [Concomitant]
  4. ASPIRIN [Concomitant]
  5. HUMIBID [Concomitant]
  6. ZYRTEC [Concomitant]
  7. FLONASE [Concomitant]
  8. FOLTX [Concomitant]
  9. MEXILETINE HCL [Concomitant]
  10. MOBIC [Concomitant]

REACTIONS (1)
  - VENTRICULAR FIBRILLATION [None]
